FAERS Safety Report 22155170 (Version 2)
Quarter: 2023Q2

REPORT INFORMATION
  Report Type: Report from Study
  Country: AE (occurrence: None)
  Receive Date: 20230330
  Receipt Date: 20230510
  Transmission Date: 20230721
  Serious: Yes (Hospitalization)
  Sender: FDA-Public Use
  Company Number: 2023A071536

PATIENT
  Age: 61 Year
  Sex: Male
  Weight: 111 kg

DRUGS (1)
  1. CILGAVIMAB\TIXAGEVIMAB [Suspect]
     Active Substance: CILGAVIMAB\TIXAGEVIMAB
     Indication: COVID-19 prophylaxis
     Route: 030
     Dates: start: 20230118

REACTIONS (1)
  - Scrotal oedema [Recovered/Resolved]

NARRATIVE: CASE EVENT DATE: 20230218
